FAERS Safety Report 5711260-9 (Version None)
Quarter: 2008Q2

REPORT INFORMATION
  Report Type: 
  Country: None (occurrence: None)
  Receive Date: 20080415
  Receipt Date: 20080401
  Transmission Date: 20081010
  Serious: Yes (Hospitalization)
  Sender: FDA-Public Use
  Company Number: A-CH2008-19814

PATIENT
  Age: 67 Year
  Sex: Female
  Weight: 53.5 kg

DRUGS (8)
  1. TRACLEER [Suspect]
     Indication: PULMONARY HYPERTENSION
     Dosage: 62.5 MG, BID, ORAL
     Route: 048
     Dates: start: 20070801
  2. CIPROFLOXACIN [Suspect]
  3. OMEPRAZOLE [Concomitant]
  4. TELMISARTAN (TELMISARTAN) [Concomitant]
  5. AMLODIPINE [Concomitant]
  6. RAMIPRIL [Concomitant]
  7. INSULIN (INSULIN) [Concomitant]
  8. RITUXAN [Concomitant]

REACTIONS (8)
  - ALANINE AMINOTRANSFERASE INCREASED [None]
  - ASPARTATE AMINOTRANSFERASE INCREASED [None]
  - BLOOD ALKALINE PHOSPHATASE INCREASED [None]
  - BRONCHOPNEUMONIA [None]
  - CLOSTRIDIUM DIFFICILE COLITIS [None]
  - DEHYDRATION [None]
  - GAMMA-GLUTAMYLTRANSFERASE INCREASED [None]
  - OFF LABEL USE [None]
